FAERS Safety Report 6170851-4 (Version None)
Quarter: 2009Q2

REPORT INFORMATION
  Report Type: 
  Country: None (occurrence: None)
  Receive Date: 20090427
  Receipt Date: 20090409
  Transmission Date: 20091009
  Serious: Yes (Hospitalization)
  Sender: FDA-Public Use
  Company Number: ADE# 09-060DPR

PATIENT
  Age: 77 Year
  Sex: Male

DRUGS (3)
  1. DIGOXIN [Suspect]
     Indication: ATRIAL FIBRILLATION
     Dates: start: 20080701
  2. MENAZOPRIL 10MG [Concomitant]
  3. NORVASC [Concomitant]

REACTIONS (5)
  - ATRIAL FIBRILLATION [None]
  - BLOOD PRESSURE ABNORMAL [None]
  - CONDITION AGGRAVATED [None]
  - MUSCLE SPASMS [None]
  - PULSE ABNORMAL [None]
